FAERS Safety Report 14851635 (Version 1)
Quarter: 2018Q2

REPORT INFORMATION
  Report Type: Report from Study
  Country: ES (occurrence: ES)
  Receive Date: 20180507
  Receipt Date: 20180507
  Transmission Date: 20180711
  Serious: Yes (Other)
  Sender: FDA-Public Use
  Company Number: ES-ACCORD-066517

PATIENT
  Age: 82 Year
  Sex: Female

DRUGS (4)
  1. EPLERENONE. [Interacting]
     Active Substance: EPLERENONE
     Indication: HYPERTENSIVE HEART DISEASE
     Dosage: 1-0-0
     Route: 048
     Dates: start: 2017
  2. SPIRONOLACTONE. [Interacting]
     Active Substance: SPIRONOLACTONE
     Indication: HYPERTENSIVE HEART DISEASE
     Dosage: 1-0-0
     Route: 048
     Dates: start: 2017, end: 20170616
  3. SEGURIL [Concomitant]
     Active Substance: FUROSEMIDE
     Indication: HYPERTENSIVE HEART DISEASE
     Dosage: STRENGTH: 40 MG
     Route: 048
     Dates: start: 2017, end: 20170616
  4. RAMIPRIL. [Suspect]
     Active Substance: RAMIPRIL
     Indication: HYPERTENSIVE HEART DISEASE
     Dosage: 1-0-0
     Route: 048
     Dates: start: 2017

REACTIONS (2)
  - Drug interaction [Unknown]
  - Hyperkalaemia [Recovering/Resolving]

NARRATIVE: CASE EVENT DATE: 201706
